FAERS Safety Report 5126156-3 (Version None)
Quarter: 2006Q3

REPORT INFORMATION
  Report Type: 
  Country: None (occurrence: None)
  Receive Date: 20060823
  Receipt Date: 20060324
  Transmission Date: 20061208
  Serious: Yes (Other)
  Sender: FDA-Public Use
  Company Number: 2006042211

PATIENT
  Sex: Male

DRUGS (1)
  1. NORVASC [Suspect]
     Indication: MYOCARDIAL INFARCTION
     Dosage: 10 MG (10 MG,DAILY),ORAL
     Route: 048

REACTIONS (4)
  - NEURALGIA [None]
  - STOMACH DISCOMFORT [None]
  - VOMITING [None]
  - WEIGHT DECREASED [None]
